FAERS Safety Report 21673433 (Version 3)
Quarter: 2023Q2

REPORT INFORMATION
  Report Type: Report from Study
  Country: KR (occurrence: None)
  Receive Date: 20221202
  Receipt Date: 20230407
  Transmission Date: 20230721
  Serious: Yes (Death, Hospitalization)
  Sender: FDA-Public Use
  Company Number: KR-Eisai Medical Research-EC-2022-129117

PATIENT
  Age: 72 Year
  Sex: Female
  Weight: 69.1 kg

DRUGS (14)
  1. LENVIMA [Suspect]
     Active Substance: LENVATINIB
     Indication: Endometrial cancer
     Route: 048
     Dates: start: 20220802, end: 20221028
  2. PEMBROLIZUMAB [Suspect]
     Active Substance: PEMBROLIZUMAB
     Indication: Endometrial cancer
     Route: 041
     Dates: start: 20220802, end: 20221028
  3. DAEWOONGBIO LINAGLIPTIN [Concomitant]
     Indication: Diabetes mellitus
     Route: 048
     Dates: start: 2010
  4. GLICLAZIDE SAMIK [Concomitant]
     Indication: Diabetes mellitus
     Route: 048
     Dates: start: 2010
  5. METFORMIN HCI DONGSUNG [Concomitant]
     Indication: Diabetes mellitus
     Route: 048
     Dates: start: 2010
  6. LIVALO [Concomitant]
     Active Substance: PITAVASTATIN CALCIUM
     Indication: Hyperlipidaemia
     Route: 048
     Dates: start: 2010
  7. ZELDOX [Concomitant]
     Active Substance: ZIPRASIDONE
     Indication: Schizophrenia
     Route: 048
     Dates: start: 2007
  8. NEURONTIN [Concomitant]
     Active Substance: GABAPENTIN
     Indication: Polyneuropathy
     Route: 048
     Dates: start: 202104
  9. CYMBALTA [Concomitant]
     Active Substance: DULOXETINE HYDROCHLORIDE
     Indication: Polyneuropathy
     Route: 048
     Dates: start: 202104
  10. CARVEDILOL [Concomitant]
     Active Substance: CARVEDILOL
     Indication: Hypertension
     Route: 048
     Dates: start: 20220925, end: 20221031
  11. ADALAT [Concomitant]
     Active Substance: NIFEDIPINE
     Indication: Hypertension
     Route: 048
     Dates: start: 20220925, end: 20221031
  12. KANARB [Concomitant]
     Indication: Hypertension
     Route: 048
     Dates: start: 20220925, end: 20221031
  13. BETMIGA PR [Concomitant]
     Indication: Hypertension
     Route: 048
     Dates: start: 20220925, end: 20221031
  14. CYMBALTA [Concomitant]
     Active Substance: DULOXETINE HYDROCHLORIDE
     Indication: Polyneuropathy
     Dates: start: 202104

REACTIONS (2)
  - Abdominal distension [Fatal]
  - Aspartate aminotransferase increased [Fatal]

NARRATIVE: CASE EVENT DATE: 20221028
